FAERS Safety Report 8015590-X (Version None)
Quarter: 2011Q4

REPORT INFORMATION
  Report Type: 
  Country: None (occurrence: None)
  Receive Date: 20111230
  Receipt Date: 20111216
  Transmission Date: 20120403
  Serious: No
  Sender: FDA-Public Use
  Company Number: US-ENDO PHARMACEUTICALS INC.-FURO20110025

PATIENT
  Sex: Male
  Weight: 93.933 kg

DRUGS (14)
  1. SPIRONOLACTONE [Suspect]
     Indication: PRODUCT USED FOR UNKNOWN INDICATION
     Dosage: UNK
     Dates: start: 20111101, end: 20111101
  2. LUPRON [Concomitant]
  3. FOLIC ACID [Concomitant]
     Indication: PRODUCT USED FOR UNKNOWN INDICATION
     Dosage: UNK
  4. SELENIUM [Concomitant]
     Indication: PRODUCT USED FOR UNKNOWN INDICATION
     Dosage: UNK
  5. PROVENGE [Suspect]
     Dosage: 250 ML
     Dates: start: 20111214, end: 20111214
  6. AMLODIPINE [Concomitant]
     Indication: PRODUCT USED FOR UNKNOWN INDICATION
     Dosage: UNK
  7. DENOSUMAB [Concomitant]
     Indication: PRODUCT USED FOR UNKNOWN INDICATION
     Dosage: UNK
  8. FUROSEMIDE [Suspect]
     Indication: PRODUCT USED FOR UNKNOWN INDICATION
     Dosage: UNK
  9. CITRICAL + D [Concomitant]
  10. ATENOLOL [Concomitant]
     Indication: PRODUCT USED FOR UNKNOWN INDICATION
     Dosage: UNK
  11. PROVENGE [Suspect]
     Indication: PROSTATE CANCER
     Dosage: 250 ML
     Dates: start: 20111031, end: 20111031
  12. LISINOPRIL [Suspect]
     Indication: PRODUCT USED FOR UNKNOWN INDICATION
     Dosage: UNK
     Dates: start: 20111101, end: 20111101
  13. ASPIRIN [Concomitant]
     Indication: PRODUCT USED FOR UNKNOWN INDICATION
     Dosage: 81 MG
  14. ASACOL [Concomitant]
     Indication: PRODUCT USED FOR UNKNOWN INDICATION
     Dosage: UNK

REACTIONS (8)
  - HYPERKALAEMIA [None]
  - PLEURAL EFFUSION [None]
  - DEVICE RELATED INFECTION [None]
  - LEFT VENTRICULAR DYSFUNCTION [None]
  - ATRIAL FIBRILLATION [None]
  - PULMONARY OEDEMA [None]
  - CARDIAC FAILURE [None]
  - STAPHYLOCOCCUS TEST POSITIVE [None]
